FAERS Safety Report 11080055 (Version 1)
Quarter: 2015Q2

REPORT INFORMATION
  Report Type: Spontaneous
  Country: FR (occurrence: FR)
  Receive Date: 20150430
  Receipt Date: 20150430
  Transmission Date: 20150821
  Serious: Yes (Hospitalization)
  Sender: FDA-Public Use
  Company Number: FR-ABBVIE-15P-056-1382957-00

PATIENT
  Age: 49 Year
  Sex: Male

DRUGS (9)
  1. NORVIR [Suspect]
     Active Substance: RITONAVIR
     Indication: HIV INFECTION
     Route: 048
     Dates: start: 20150103, end: 20150106
  2. DARUNAVIR [Suspect]
     Active Substance: DARUNAVIR
     Indication: HIV INFECTION
     Route: 065
  3. BACTRIM [Concomitant]
     Active Substance: SULFAMETHOXAZOLE\TRIMETHOPRIM
     Indication: PRODUCT USED FOR UNKNOWN INDICATION
     Route: 065
  4. MOVICOL [Concomitant]
     Active Substance: POLYETHYLENE GLYCOL 3350\POTASSIUM CHLORIDE\SODIUM BICARBONATE\SODIUM CHLORIDE
     Indication: PRODUCT USED FOR UNKNOWN INDICATION
     Route: 065
  5. ABACAVIR SULFATE. [Concomitant]
     Active Substance: ABACAVIR SULFATE
     Indication: PRODUCT USED FOR UNKNOWN INDICATION
     Route: 065
  6. LAMIVUDINE. [Concomitant]
     Active Substance: LAMIVUDINE
     Indication: PRODUCT USED FOR UNKNOWN INDICATION
     Route: 065
  7. NORVIR [Suspect]
     Active Substance: RITONAVIR
     Route: 048
     Dates: start: 20150107
  8. LOVENOX [Concomitant]
     Active Substance: ENOXAPARIN SODIUM
     Indication: PRODUCT USED FOR UNKNOWN INDICATION
     Route: 065
  9. LEVETIRACETAM. [Concomitant]
     Active Substance: LEVETIRACETAM
     Indication: PRODUCT USED FOR UNKNOWN INDICATION
     Route: 065

REACTIONS (3)
  - Off label use [Unknown]
  - Drug prescribing error [Recovered/Resolved]
  - Hepatocellular injury [Recovered/Resolved]

NARRATIVE: CASE EVENT DATE: 20150103
